FAERS Safety Report 9305694 (Version 3)
Quarter: 2013Q2

REPORT INFORMATION
  Report Type: Spontaneous
  Country: JP (occurrence: JP)
  Receive Date: 20130523
  Receipt Date: 20130624
  Transmission Date: 20140414
  Serious: Yes (Hospitalization)
  Sender: FDA-Public Use
  Company Number: JP-ELI_LILLY_AND_COMPANY-JP201305004005

PATIENT
  Age: 81 Year
  Sex: Female
  Weight: 55 kg

DRUGS (8)
  1. FORTEO [Suspect]
     Indication: OSTEOPOROSIS
     Dosage: 20 UG, QD
     Route: 058
     Dates: start: 20130209, end: 20130209
  2. AMLODIPINE [Concomitant]
     Dosage: UNK
     Route: 048
  3. METHISTA [Concomitant]
     Dosage: UNK
     Route: 048
  4. JUVELA N [Concomitant]
     Dosage: UNK
     Route: 048
  5. ALLEGRA [Concomitant]
     Dosage: UNK
     Route: 048
  6. BAKUMONDOTO [Concomitant]
     Dosage: UNK
     Route: 065
  7. SINGULAIR [Concomitant]
     Dosage: UNK
     Route: 048
  8. MEPTIN AIR [Concomitant]
     Dosage: UNK
     Route: 048

REACTIONS (2)
  - Depressed level of consciousness [Recovered/Resolved]
  - Pyrexia [Recovered/Resolved]
